FAERS Safety Report 10067280 (Version 2)
Quarter: 2014Q2

REPORT INFORMATION
  Report Type: Spontaneous
  Country: JP (occurrence: None)
  Receive Date: 20140407
  Receipt Date: 20140512
  Transmission Date: 20141212
  Serious: Yes (Death, Hospitalization)
  Sender: FDA-Public Use
  Company Number: JP-015140

PATIENT
  Age: 86 Year
  Sex: Male

DRUGS (5)
  1. DEGARELIX [Suspect]
     Indication: PROSTATE CANCER
     Dosage: 240 1X/MONTH SUBCUTANEOUS
     Route: 058
     Dates: start: 20130208, end: 20130208
  2. LEUPLIN [Concomitant]
  3. PREDNISOLONE [Concomitant]
  4. BIASETYL [Concomitant]
  5. HYPEN [Concomitant]

REACTIONS (5)
  - Ileus paralytic [None]
  - Back pain [None]
  - Metastases to bone [None]
  - Metastases to bone marrow [None]
  - Prostate cancer [None]
